FAERS Safety Report 8515752 (Version 3)
Quarter: 2013Q2

REPORT INFORMATION
  Report Type: Spontaneous
  Country: US (occurrence: US)
  Receive Date: 20120417
  Receipt Date: 20130606
  Transmission Date: 20140414
  Serious: Yes (Other)
  Sender: FDA-Public Use
  Company Number: US-PFIZER INC-2012091804

PATIENT
  Age: 47 Year
  Sex: Female
  Weight: 116 kg

DRUGS (10)
  1. LYRICA [Suspect]
     Indication: FIBROMYALGIA
     Dosage: 100MG IN THE MORNING, 200MG IN THE EVENING
     Route: 048
     Dates: end: 201203
  2. LYRICA [Suspect]
     Dosage: UNK
     Route: 048
  3. LIPITOR [Suspect]
     Dosage: UNK
  4. ALBUTEROL [Concomitant]
     Indication: ASTHMA
     Dosage: UNK
     Route: 055
  5. ALLEGRA [Concomitant]
     Indication: HYPERSENSITIVITY
     Dosage: UNK
  6. KOMBIGLYZE XR [Concomitant]
     Indication: DIABETES MELLITUS
     Dosage: 5MG/500MG, UNK
  7. BENAZEPRIL HYDROCHLORIDE/HYDROCHLOROTHIAZIDE [Concomitant]
     Indication: HYPERTENSION
     Dosage: UNK
  8. MAXALT [Concomitant]
     Indication: MIGRAINE
     Dosage: 10 MG, UNK
  9. BUSPIRONE [Concomitant]
     Dosage: UNK
  10. OXYCODONE [Concomitant]
     Indication: BURSITIS
     Dosage: UNK

REACTIONS (2)
  - Bursitis [Unknown]
  - Pain [Not Recovered/Not Resolved]
